FAERS Safety Report 21166794 (Version 3)
Quarter: 2022Q4

REPORT INFORMATION
  Report Type: Spontaneous
  Country: GB (occurrence: GB)
  Receive Date: 20220803
  Receipt Date: 20221124
  Transmission Date: 20230113
  Serious: Yes (Hospitalization)
  Sender: FDA-Public Use
  Company Number: GB-Accord-270914

PATIENT
  Age: 54 Year
  Sex: Male
  Weight: 82.4 kg

DRUGS (28)
  1. GEMCITABINE HYDROCHLORIDE [Suspect]
     Active Substance: GEMCITABINE HYDROCHLORIDE
     Indication: Follicular lymphoma stage IV
     Dosage: 1000MG, EVERY 2 WEEKS.(1Q2W)
     Route: 042
     Dates: start: 20220623, end: 20220707
  2. GEMCITABINE HYDROCHLORIDE [Suspect]
     Active Substance: GEMCITABINE HYDROCHLORIDE
     Dosage: 750 MG/M2; EVERY 2 WEEKS.(1Q2W)
     Route: 042
     Dates: start: 20220722
  3. OXALIPLATIN [Suspect]
     Active Substance: OXALIPLATIN
     Indication: Follicular lymphoma stage IV
     Dosage: 100MG/M2, EVERY 2 WEEKS(1Q2W)
     Route: 042
     Dates: start: 20220623
  4. EPCORITAMAB [Suspect]
     Active Substance: EPCORITAMAB
     Indication: Follicular lymphoma stage IV
     Dosage: PRIMING DOSE (DUOBODY-CD3XCD20 REGIMEN 1)
     Route: 058
     Dates: start: 20220623, end: 20220623
  5. EPCORITAMAB [Suspect]
     Active Substance: EPCORITAMAB
     Dosage: INTERMEDIATE DOSE, SINGLE (DUOBODY-CD3XCD20 REGIMEN 2)
     Route: 058
     Dates: start: 20220630, end: 20220630
  6. EPCORITAMAB [Suspect]
     Active Substance: EPCORITAMAB
     Dosage: 24MG -FULL DOSE, WEEKLY (DUOBODY-CD3XCD20 REGIMEN 3)
     Route: 058
     Dates: start: 20220707
  7. ALLOPURINOL [Concomitant]
     Active Substance: ALLOPURINOL
     Dates: start: 20220624, end: 20220624
  8. CANNABIDIOL [Concomitant]
     Active Substance: CANNABIDIOL
  9. CETIRIZINE [Concomitant]
     Active Substance: CETIRIZINE HYDROCHLORIDE
     Dates: start: 20220630
  10. CHLORPHENIRAMINE MALEATE [Concomitant]
     Active Substance: CHLORPHENIRAMINE MALEATE
     Indication: Premedication
     Dosage: 4MG
     Route: 048
     Dates: start: 20220623, end: 20220714
  11. CHLORPHENIRAMINE MALEATE [Concomitant]
     Active Substance: CHLORPHENIRAMINE MALEATE
     Dosage: 4MG
     Route: 048
     Dates: start: 20220707, end: 20220714
  12. CHLORPHENIRAMINE MALEATE [Concomitant]
     Active Substance: CHLORPHENIRAMINE MALEATE
     Dosage: 4MG
     Route: 048
     Dates: start: 20220623, end: 20220707
  13. CHLORPHENIRAMINE MALEATE [Concomitant]
     Active Substance: CHLORPHENIRAMINE MALEATE
     Dosage: 4MG (PIRITON)
     Route: 048
     Dates: start: 20220714, end: 20220714
  14. COTRIMOXAZOLE [Concomitant]
     Active Substance: SULFAMETHOXAZOLE\TRIMETHOPRIM
     Dates: start: 20220623
  15. FAMOTIDINE [Concomitant]
     Active Substance: FAMOTIDINE
  16. DEXTROSE [Concomitant]
     Active Substance: DEXTROSE
     Dosage: 5 %
     Dates: start: 20220623, end: 20220623
  17. POLYETHYLENE GLYCOL 3350\POTASSIUM CHLORIDE\SODIUM BICARBONATE\SODIUM [Concomitant]
     Active Substance: POLYETHYLENE GLYCOL 3350\POTASSIUM CHLORIDE\SODIUM BICARBONATE\SODIUM CHLORIDE
  18. METOCLOPRAMIDE [Concomitant]
     Active Substance: METOCLOPRAMIDE
     Dates: start: 20220623
  19. OMEPRAZOLE [Concomitant]
     Active Substance: OMEPRAZOLE
     Dates: start: 20220613
  20. ONDANSETRON [Concomitant]
     Active Substance: ONDANSETRON
     Dates: start: 20220623, end: 20220623
  21. ACETAMINOPHEN [Concomitant]
     Active Substance: ACETAMINOPHEN
     Indication: Premedication
     Dosage: UNK
     Route: 048
     Dates: start: 20220623, end: 20220714
  22. ACETAMINOPHEN [Concomitant]
     Active Substance: ACETAMINOPHEN
     Indication: Discomfort
     Dosage: UNK
     Dates: start: 20220722
  23. ACETAMINOPHEN [Concomitant]
     Active Substance: ACETAMINOPHEN
     Dosage: UNK
  24. PREDNISOLONE [Concomitant]
     Active Substance: PREDNISOLONE
     Dosage: UNK
     Dates: start: 20220623, end: 20220623
  25. SENNA [Concomitant]
     Active Substance: SENNA LEAF\SENNOSIDES\SENNOSIDES A AND B
  26. SODIUM CHLORIDE [Concomitant]
     Active Substance: SODIUM CHLORIDE
     Dosage: 0.9 %
     Dates: start: 20220623, end: 20220623
  27. PIPERACILLIN SODIUM\TAZOBACTAM SODIUM [Concomitant]
     Active Substance: PIPERACILLIN SODIUM\TAZOBACTAM SODIUM
     Dosage: UNK
     Dates: start: 20220708, end: 20220708
  28. FILGRASTIM [Concomitant]
     Active Substance: FILGRASTIM
     Indication: Neutrophil count decreased
     Dosage: 30 MU
     Dates: start: 20220711, end: 20220718

REACTIONS (1)
  - Cytokine release syndrome [Recovered/Resolved]

NARRATIVE: CASE EVENT DATE: 20220711
